FAERS Safety Report 8545557-4 (Version None)
Quarter: 2012Q3

REPORT INFORMATION
  Report Type: 
  Country: None (occurrence: None)
  Receive Date: 20120727
  Receipt Date: 20111102
  Transmission Date: 20120928
  Serious: No
  Sender: FDA-Public Use
  Company Number: US-ASTRAZENECA-2011SE64546

PATIENT
  Age: 55 Year
  Sex: Female
  Weight: 88 kg

DRUGS (10)
  1. CLONAZEPAM [Concomitant]
     Indication: ANXIETY
     Dates: start: 20080101
  2. SEROQUEL [Suspect]
     Route: 048
     Dates: start: 20100101
  3. LEXAPRO [Concomitant]
     Indication: BIPOLAR DISORDER
     Dosage: EVERY DAY
     Dates: start: 20080101
  4. SEROQUEL [Suspect]
     Indication: BIPOLAR DISORDER
     Route: 048
     Dates: start: 20080101
  5. SEROQUEL [Suspect]
     Dosage: TWO TABLETS
     Route: 048
  6. LISINOPRIL [Concomitant]
     Indication: HYPERTENSION
     Route: 048
     Dates: start: 20080101
  7. SEROQUEL [Suspect]
     Dosage: ONE AND HALF TABLETS
     Route: 048
  8. SEROQUEL [Suspect]
     Route: 048
  9. LAMICTAL [Concomitant]
     Indication: BIPOLAR DISORDER
     Dosage: TWO TIMES A DAY
     Dates: start: 20080101
  10. AMLODIPINE [Concomitant]
     Indication: HYPERTENSION
     Dates: start: 20080101

REACTIONS (4)
  - POOR QUALITY SLEEP [None]
  - SOMNOLENCE [None]
  - WRONG TECHNIQUE IN DRUG USAGE PROCESS [None]
  - SLEEP DISORDER [None]
